FAERS Safety Report 25143430 (Version 4)
Quarter: 2025Q2

REPORT INFORMATION
  Report Type: Spontaneous
  Country: US (occurrence: US)
  Receive Date: 20250401
  Receipt Date: 20250627
  Transmission Date: 20250717
  Serious: No
  Sender: NOVARTIS
  Company Number: US-002147023-NVSC2025US048094

PATIENT
  Age: 55 Year
  Sex: Male

DRUGS (12)
  1. SANDOSTATIN LAR DEPOT [Suspect]
     Active Substance: OCTREOTIDE ACETATE
     Indication: Renal cell carcinoma
     Dosage: UNK, Q4W (UNK, Q4WEEKS)
     Route: 065
     Dates: start: 20250201
  2. SANDOSTATIN LAR DEPOT [Suspect]
     Active Substance: OCTREOTIDE ACETATE
     Indication: Metastases to lung
  3. SANDOSTATIN LAR DEPOT [Suspect]
     Active Substance: OCTREOTIDE ACETATE
     Indication: Pancreatic carcinoma
  4. CABOMETYX [Suspect]
     Active Substance: CABOZANTINIB S-MALATE
     Indication: Renal cell carcinoma
     Dosage: 40 MG, QD
     Route: 065
     Dates: start: 20250201
  5. CABOMETYX [Suspect]
     Active Substance: CABOZANTINIB S-MALATE
     Indication: Metastases to lung
     Dosage: 40 MG, QD
     Route: 048
  6. CABOMETYX [Suspect]
     Active Substance: CABOZANTINIB S-MALATE
     Indication: Pancreatic carcinoma
  7. CLOTRIMAZOLE [Concomitant]
     Active Substance: CLOTRIMAZOLE
     Indication: Product used for unknown indication
     Route: 065
  8. MUPIROCIN [Concomitant]
     Active Substance: MUPIROCIN
     Indication: Product used for unknown indication
     Route: 065
  9. IBUPROFEN [Concomitant]
     Active Substance: IBUPROFEN
     Indication: Product used for unknown indication
     Route: 065
  10. SENNA [Concomitant]
     Active Substance: SENNOSIDES
     Indication: Product used for unknown indication
     Route: 065
  11. UREA [Concomitant]
     Active Substance: UREA
     Indication: Product used for unknown indication
     Route: 065
  12. CLOBETASOL [Concomitant]
     Active Substance: CLOBETASOL
     Indication: Product used for unknown indication
     Route: 065

REACTIONS (17)
  - Erythema [Unknown]
  - Pain in extremity [Unknown]
  - Abdominal pain upper [Unknown]
  - Fatigue [Unknown]
  - Diarrhoea [Unknown]
  - Somnolence [Unknown]
  - Abdominal distension [Unknown]
  - Skin exfoliation [Unknown]
  - Genital erythema [Unknown]
  - Rash pruritic [Unknown]
  - Asthenia [Unknown]
  - Feeling abnormal [Unknown]
  - Gait disturbance [Unknown]
  - Arthralgia [Unknown]
  - Pain [Unknown]
  - Malaise [Unknown]
  - Product use in unapproved indication [Unknown]
